FAERS Safety Report 16633203 (Version 1)
Quarter: 2019Q3

REPORT INFORMATION
  Report Type: Spontaneous
  Country: DE (occurrence: DE)
  Receive Date: 20190725
  Receipt Date: 20190725
  Transmission Date: 20191004
  Serious: Yes (Other)
  Sender: FDA-Public Use
  Company Number: DE-ASTRAZENECA-2019SF04664

PATIENT
  Age: 94 Year
  Sex: Female

DRUGS (2)
  1. NEXIUM MUPS [Suspect]
     Active Substance: ESOMEPRAZOLE
     Indication: GASTRIC HAEMORRHAGE
     Dosage: 40.0MG UNKNOWN
     Route: 048
  2. DOMPERIDONE [Concomitant]
     Active Substance: DOMPERIDONE

REACTIONS (3)
  - Off label use [Unknown]
  - Pneumonia [Unknown]
  - Product use in unapproved indication [Unknown]
